FAERS Safety Report 7633193-3 (Version None)
Quarter: 2011Q3

REPORT INFORMATION
  Report Type: 
  Country: None (occurrence: None)
  Receive Date: 20110725
  Receipt Date: 20110718
  Transmission Date: 20111222
  Serious: Yes (Other)
  Sender: FDA-Public Use
  Company Number: US-PFIZER INC-2011164358

PATIENT
  Sex: Male

DRUGS (1)
  1. QUINAPRIL HCL + HYDROCHLOROTHIAZIDE [Suspect]
     Indication: BLOOD PRESSURE
     Dosage: 20/12.5
     Route: 048

REACTIONS (2)
  - PROSTATE CANCER [None]
  - RENAL DISORDER [None]
